FAERS Safety Report 8948044 (Version 1)
Quarter: 2012Q4

REPORT INFORMATION
  Report Type: Spontaneous
  Country: US (occurrence: None)
  Receive Date: 20121203
  Receipt Date: 20121203
  Transmission Date: 20130627
  Serious: Yes (Hospitalization)
  Sender: FDA-Public Use
  Company Number: None

PATIENT
  Age: 74 Year
  Sex: Male
  Weight: 77.5 kg

DRUGS (1)
  1. WARFARIN [Suspect]
     Indication: ATRIAL FIBRILLATION
     Dosage: MG PO
     Dates: start: 19810101

REACTIONS (5)
  - Epistaxis [None]
  - Gastric haemorrhage [None]
  - Anaemia [None]
  - International normalised ratio increased [None]
  - Bradycardia [None]
